FAERS Safety Report 9441097 (Version 4)
Quarter: 2013Q3

REPORT INFORMATION
  Report Type: Spontaneous
  Country: GB (occurrence: None)
  Receive Date: 20130801
  Receipt Date: 20130906
  Transmission Date: 20140515
  Serious: Yes (Congenital Anomaly, Other)
  Sender: FDA-Public Use
  Company Number: AUR-APL-2013-06213

PATIENT
  Sex: 0

DRUGS (6)
  1. OLANZAPINE [Suspect]
     Indication: SCHIZOPHRENIA
     Route: 064
  2. OMEPRAZOLE [Suspect]
     Indication: PRODUCT USED FOR UNKNOWN INDICATION
     Route: 064
  3. DIAZEPAM [Suspect]
     Indication: PRODUCT USED FOR UNKNOWN INDICATION
     Dosage: 30MG (10MG, 3 IN 1)
     Route: 064
  4. PREGABALIN [Suspect]
     Indication: PAIN IN EXTREMITY
     Dosage: 600 MG (300 MG, 2 IN 1 D)
     Route: 064
  5. SUBUTEX [Suspect]
     Indication: SUBSTANCE ABUSE
     Dosage: 14 MG (14 MG, 1 IN 1 D), TRNASPLACENTAL
  6. ZOPICLONE [Suspect]
     Indication: PRODUCT USED FOR UNKNOWN INDICATION
     Dosage: 15 MG (15 MG, 1 IN 1  D), TRANSPLACENTAL
     Route: 064

REACTIONS (8)
  - Limb reduction defect [None]
  - Heart disease congenital [None]
  - Oesophageal atresia [None]
  - Cardiac disorder [None]
  - Single functional kidney [None]
  - Foetal malformation [None]
  - Maternal drugs affecting foetus [None]
  - Congenital scoliosis [None]
